FAERS Safety Report 21124961 (Version 5)
Quarter: 2022Q4

REPORT INFORMATION
  Report Type: Spontaneous
  Country: CA (occurrence: CA)
  Receive Date: 20220725
  Receipt Date: 20221104
  Transmission Date: 20230112
  Serious: Yes (Other)
  Sender: FDA-Public Use
  Company Number: CA-CELLTRION INC.-2022CA004429

PATIENT

DRUGS (5)
  1. INFLECTRA [Suspect]
     Active Substance: INFLIXIMAB-DYYB
     Indication: Colitis ulcerative
     Dosage: 5 MG/KG 2, 6, THEN EVERY 8 WEEKS, REMICADE WEEK 0 DOSE
     Route: 042
     Dates: start: 20220226
  2. INFLECTRA [Suspect]
     Active Substance: INFLIXIMAB-DYYB
     Dosage: 5 MG/KG 2, 6, THEN EVERY 8 WEEKS, REMICADE WEEK 0 DOSE
     Route: 042
     Dates: start: 20220714
  3. INFLECTRA [Suspect]
     Active Substance: INFLIXIMAB-DYYB
     Dosage: 5 MG/KG Q 2, 6, THEN EVERY 8 WEEKSREMICADE WEEK 0 DOSE
     Route: 042
     Dates: start: 20220908
  4. ASACOL [Concomitant]
     Active Substance: MESALAMINE
     Dosage: UNK
  5. PREDNISONE [Concomitant]
     Active Substance: PREDNISONE
     Dosage: 20 MG, (ALWAYS DONE WHEN I AM STARTING TO FLARE), PRN

REACTIONS (14)
  - Haematochezia [Not Recovered/Not Resolved]
  - Drug ineffective [Unknown]
  - Pruritus [Recovered/Resolved]
  - Erythema [Recovered/Resolved]
  - Pruritus [Recovered/Resolved]
  - Condition aggravated [Not Recovered/Not Resolved]
  - Unhealthy diet [Unknown]
  - Erythema [Recovered/Resolved]
  - Pain [Not Recovered/Not Resolved]
  - Anxiety [Unknown]
  - Dizziness [Not Recovered/Not Resolved]
  - Decreased appetite [Not Recovered/Not Resolved]
  - General physical health deterioration [Not Recovered/Not Resolved]
  - Off label use [Unknown]

NARRATIVE: CASE EVENT DATE: 20220101
